FAERS Safety Report 8935728 (Version 1)
Quarter: 2012Q4

REPORT INFORMATION
  Report Type: 
  Country: AR (occurrence: AR)
  Receive Date: 20121130
  Receipt Date: 20121130
  Transmission Date: 20130627
  Serious: Yes (Hospitalization)
  Sender: FDA-Public Use
  Company Number: AR-BRISTOL-MYERS SQUIBB COMPANY-17109026

PATIENT
  Age: 81 Year
  Sex: Female

DRUGS (1)
  1. YERVOY [Suspect]
     Indication: MALIGNANT MELANOMA
     Dosage: 4 vials of 50 mg on infusion every 21 days.
     Dates: start: 20111011

REACTIONS (2)
  - Oedema [Unknown]
  - Malaise [Unknown]
